FAERS Safety Report 6285600-9 (Version None)
Quarter: 2009Q3

REPORT INFORMATION
  Report Type: 
  Country: None (occurrence: None)
  Receive Date: 20090724
  Receipt Date: 20090602
  Transmission Date: 20100115
  Serious: Yes (Other)
  Sender: FDA-Public Use
  Company Number: 2009SP010911

PATIENT
  Age: 59 Year
  Sex: Female
  Weight: 58.5 kg

DRUGS (11)
  1. PEG-INTRON [Suspect]
     Indication: HEPATITIS C
     Dosage: 96 MCG QW SC; 72 MCG QW SC
     Route: 058
     Dates: end: 20090518
  2. PEG-INTRON [Suspect]
     Indication: HEPATITIS C
     Dosage: 96 MCG QW SC; 72 MCG QW SC
     Route: 058
     Dates: start: 20081120
  3. RIBAVIRIN [Suspect]
     Indication: HEPATITIS C
     Dosage: 800 MG QD PO; 400 MG QD PO
     Route: 048
     Dates: end: 20080521
  4. RIBAVIRIN [Suspect]
     Indication: HEPATITIS C
     Dosage: 800 MG QD PO; 400 MG QD PO
     Route: 048
     Dates: start: 20081120
  5. BLINDED SCH 503034  (HCV PROTEASE INHIBITOR)     (BOCEPREVIR) [Suspect]
     Indication: HEPATITIS C
     Dosage: 800 MG TID PO; 400 MG TID PO
     Route: 048
     Dates: end: 20090521
  6. BLINDED SCH 503034  (HCV PROTEASE INHIBITOR)     (BOCEPREVIR) [Suspect]
     Indication: HEPATITIS C
     Dosage: 800 MG TID PO; 400 MG TID PO
     Route: 048
     Dates: start: 20081218
  7. LISINOPRIL [Concomitant]
  8. NIFEDIPINE [Concomitant]
  9. LEVOTHROID [Concomitant]
  10. NABUMETONE [Concomitant]
  11. WELLBUTRIN [Concomitant]

REACTIONS (1)
  - OPTIC NEUROPATHY [None]
